FAERS Safety Report 23995617 (Version 1)
Quarter: 2024Q2

REPORT INFORMATION
  Report Type: Report from Study
  Country: US (occurrence: US)
  Receive Date: 20240620
  Receipt Date: 20240620
  Transmission Date: 20240716
  Serious: Yes (Other)
  Sender: FDA-Public Use
  Company Number: US-BAYER-2024A087091

PATIENT
  Age: 37 Year
  Sex: Male

DRUGS (1)
  1. STIVARGA [Suspect]
     Active Substance: REGORAFENIB\REGORAFENIB MONOHYDRATE
     Dosage: 160 MG, QD, ~160MG BY MOUTH DAILY FOR THE FIRST 21 DAYS OF A 28 DAY CYCLE
     Route: 048
     Dates: start: 20240604

REACTIONS (1)
  - Neuropathy peripheral [Not Recovered/Not Resolved]
